FAERS Safety Report 4495269-1 (Version None)
Quarter: 2004Q4

REPORT INFORMATION
  Report Type: 
  Country: None (occurrence: None)
  Receive Date: 20041108
  Receipt Date: 20040819
  Transmission Date: 20050328
  Serious: No
  Sender: FDA-Public Use
  Company Number: US-GLAXOSMITHKLINE-A0522778A

PATIENT
  Age: 67 Year
  Sex: Male

DRUGS (5)
  1. AVANDAMET [Suspect]
     Route: 048
     Dates: start: 20040818
  2. ECOTRIN [Concomitant]
  3. GINGKO [Concomitant]
  4. TYLENOL PM [Concomitant]
  5. CRESTOR [Concomitant]

REACTIONS (1)
  - DRUG INEFFECTIVE [None]
